FAERS Safety Report 7473102-3 (Version None)
Quarter: 2011Q2

REPORT INFORMATION
  Report Type: 
  Country: None (occurrence: None)
  Receive Date: 20110503
  Receipt Date: 20110419
  Transmission Date: 20111010
  Serious: Yes (Death, Hospitalization)
  Sender: FDA-Public Use
  Company Number: 2010AC000218

PATIENT
  Age: 85 Year
  Sex: Male

DRUGS (20)
  1. ZEMPLAR [Concomitant]
  2. DULCOLAX [Concomitant]
  3. AMLODIPINE [Concomitant]
  4. ASPIRIN [Concomitant]
  5. HALDOL [Concomitant]
  6. NORVASC [Concomitant]
  7. GEODON [Concomitant]
  8. MYLANTA [Concomitant]
  9. LIPITOR [Concomitant]
  10. DIGOXIN [Suspect]
     Dosage: 0.250 MG, QD, PO
     Route: 048
     Dates: start: 19990901
  11. ATIVAN [Concomitant]
  12. MOM [Concomitant]
  13. RANITIDINE [Concomitant]
  14. VANCOMYCIN [Concomitant]
  15. POTASSIUM CHLORIDE [Concomitant]
  16. LOVENOX [Concomitant]
  17. PEPCID [Concomitant]
  18. ACETAMINOPHEN [Concomitant]
  19. FOLIC ACID [Concomitant]
  20. PLAVIX [Concomitant]

REACTIONS (67)
  - ECONOMIC PROBLEM [None]
  - ANXIETY [None]
  - AGITATION [None]
  - REFUSAL OF TREATMENT BY PATIENT [None]
  - CARBON DIOXIDE DECREASED [None]
  - ELECTROCARDIOGRAM T WAVE ABNORMAL [None]
  - BLOOD CALCIUM DECREASED [None]
  - FAMILY STRESS [None]
  - PAIN [None]
  - ANHEDONIA [None]
  - SOCIAL PROBLEM [None]
  - TOXICITY TO VARIOUS AGENTS [None]
  - ABNORMAL BEHAVIOUR [None]
  - APHAGIA [None]
  - BLOOD FOLATE DECREASED [None]
  - HEARING IMPAIRED [None]
  - RESPIRATORY DISTRESS [None]
  - HAEMATOCHEZIA [None]
  - BLOOD SODIUM DECREASED [None]
  - GLOBULINS INCREASED [None]
  - CONDUCTION DISORDER [None]
  - UNRESPONSIVE TO STIMULI [None]
  - HYPERKALAEMIA [None]
  - OBSTRUCTIVE UROPATHY [None]
  - RESTLESSNESS [None]
  - ATRIAL FIBRILLATION [None]
  - ASPARTATE AMINOTRANSFERASE INCREASED [None]
  - BRAIN NATRIURETIC PEPTIDE INCREASED [None]
  - PULMONARY OEDEMA [None]
  - BLOOD OSMOLARITY INCREASED [None]
  - MULTIPLE INJURIES [None]
  - CEREBROVASCULAR ACCIDENT [None]
  - HYPOTENSION [None]
  - BRADYCARDIA [None]
  - IRRITABILITY [None]
  - CARDIAC FAILURE CONGESTIVE [None]
  - MYOCARDIAL ISCHAEMIA [None]
  - MITRAL VALVE INCOMPETENCE [None]
  - BLOOD CHLORIDE DECREASED [None]
  - INJURY [None]
  - ULCER [None]
  - BLOOD GLUCOSE DECREASED [None]
  - WEIGHT DECREASED [None]
  - SEPSIS [None]
  - RESPIRATORY FAILURE [None]
  - EMOTIONAL DISTRESS [None]
  - DEHYDRATION [None]
  - AGGRESSION [None]
  - PYELOCALIECTASIS [None]
  - BLOOD ALBUMIN DECREASED [None]
  - MENTAL DISORDER [None]
  - LETHARGY [None]
  - RENAL FAILURE ACUTE [None]
  - SENILE DEMENTIA [None]
  - ALBUMIN GLOBULIN RATIO DECREASED [None]
  - ELECTROCARDIOGRAM QRS COMPLEX PROLONGED [None]
  - HAEMORRHAGIC ANAEMIA [None]
  - TRICUSPID VALVE INCOMPETENCE [None]
  - AORTIC VALVE SCLEROSIS [None]
  - BLOOD SODIUM INCREASED [None]
  - MYOCARDIAL INFARCTION [None]
  - ACTIVITIES OF DAILY LIVING IMPAIRED [None]
  - TRANSIENT ISCHAEMIC ATTACK [None]
  - ALANINE AMINOTRANSFERASE INCREASED [None]
  - DECUBITUS ULCER [None]
  - BLOOD GLUCOSE INCREASED [None]
  - PYELONEPHRITIS ACUTE [None]
